FAERS Safety Report 6242864-5 (Version None)
Quarter: 2009Q2

REPORT INFORMATION
  Report Type: 
  Country: None (occurrence: None)
  Receive Date: 20090624
  Receipt Date: 20090619
  Transmission Date: 20091009
  Serious: Yes (Hospitalization)
  Sender: FDA-Public Use
  Company Number: B0579942A

PATIENT
  Sex: Female
  Weight: 108 kg

DRUGS (3)
  1. MELPHALAN HYDROCHLORIDE [Suspect]
     Indication: MULTIPLE MYELOMA
     Dosage: .25MGK PER DAY
     Route: 065
     Dates: start: 20090525, end: 20090528
  2. THALIDOMIDE [Suspect]
     Indication: MULTIPLE MYELOMA
     Dosage: 200MG PER DAY
     Route: 048
     Dates: start: 20090525
  3. PREDNISONE [Suspect]
     Indication: MULTIPLE MYELOMA
     Dosage: 2MGK PER DAY
     Route: 065
     Dates: start: 20090525, end: 20090528

REACTIONS (3)
  - HAEMOGLOBIN ABNORMAL [None]
  - LEUKOPENIA [None]
  - NEUTROPENIA [None]
